FAERS Safety Report 12703971 (Version 1)
Quarter: 2016Q3

REPORT INFORMATION
  Report Type: Spontaneous
  Country: US (occurrence: US)
  Receive Date: 20160831
  Receipt Date: 20160831
  Transmission Date: 20161109
  Serious: No
  Sender: FDA-Public Use
  Company Number: US-MYLANLABS-2016M1030673

PATIENT
  Sex: Female

DRUGS (2)
  1. LIDOCAINE PATCH [Suspect]
     Active Substance: LIDOCAINE
     Indication: OFF LABEL USE
  2. LIDOCAINE PATCH [Suspect]
     Active Substance: LIDOCAINE
     Indication: PAIN
     Dosage: 1-2 DF, QD, 12HR ON, 12HR OFF
     Route: 003
     Dates: start: 201603, end: 2016

REACTIONS (3)
  - Drug ineffective for unapproved indication [Recovered/Resolved]
  - Product quality issue [Recovered/Resolved]
  - Product adhesion issue [Recovered/Resolved]

NARRATIVE: CASE EVENT DATE: 201603
